FAERS Safety Report 9066864 (Version 1)
Quarter: 2013Q1

REPORT INFORMATION
  Report Type: Report from Study
  Country: US (occurrence: US)
  Receive Date: 20130131
  Receipt Date: 20130131
  Transmission Date: 20140127
  Serious: No
  Sender: FDA-Public Use
  Company Number: US-ABBOTT-12P-163-1013361-00

PATIENT
  Age: 71 Year
  Sex: Male

DRUGS (21)
  1. HUMIRA [Suspect]
     Dates: start: 20121102
  2. OMEPRAZOLE [Concomitant]
     Indication: GASTRIC DISORDER
     Route: 048
  3. COREG [Concomitant]
     Indication: HYPERTENSION
     Route: 048
  4. ZESTORETIC [Concomitant]
     Indication: HYPERTENSION
     Dosage: 10/12.5MG DAILY
     Route: 048
  5. PRAVASTATIN [Concomitant]
     Indication: BLOOD CHOLESTEROL INCREASED
     Dosage: DAILY
     Route: 048
  6. OXYBUTYNIN [Concomitant]
     Indication: URINARY TRACT DISORDER
     Route: 048
  7. NEURONTIN [Concomitant]
     Indication: BACK DISORDER
     Dosage: 2 TABLETS IN THE MORNING, 3 TABLETS IN THE EVENING
  8. ASPIRIN [Concomitant]
     Indication: ANTICOAGULANT THERAPY
     Dosage: DAILY
     Route: 048
  9. NITRO [Concomitant]
     Indication: CORONARY ARTERY DISEASE
     Route: 048
  10. CENTRUM CARDIO MULTIVITAMIN [Concomitant]
     Indication: VITAMIN SUPPLEMENTATION
     Dosage: ONE IN THE MORNING, ONE IN THE EVENING
     Route: 048
  11. VITAMIN C [Concomitant]
     Indication: VITAMIN SUPPLEMENTATION
     Dosage: IN THE EVENING
     Route: 048
  12. NIACIN [Concomitant]
     Indication: VITAMIN SUPPLEMENTATION
     Dosage: DAILY
     Route: 048
  13. VITAMIN D3 [Concomitant]
     Indication: VITAMIN SUPPLEMENTATION
     Dosage: IN THE EVENING
     Route: 048
  14. POTASSIUM [Concomitant]
     Indication: MINERAL SUPPLEMENTATION
     Route: 048
  15. POTASSIUM [Concomitant]
     Indication: BLOOD CHOLESTEROL
  16. OMEGA 3 [Concomitant]
     Indication: BLOOD CHOLESTEROL
     Dosage: IN THE MORNING AND IN THE EVENING
  17. VITAMIN B 12 [Concomitant]
     Indication: VITAMIN SUPPLEMENTATION
     Dosage: DAILY
     Route: 048
  18. FLEXERIL [Concomitant]
     Indication: MUSCLE SPASMS
     Route: 048
  19. OXYCODONE [Concomitant]
     Indication: BACK PAIN
     Dosage: 10M/325MG
     Route: 048
  20. FENOFIBRATE [Concomitant]
     Indication: BLOOD TRIGLYCERIDES
     Dosage: DAILY
     Route: 048
  21. LISINOPRIL [Concomitant]
     Indication: CORONARY ARTERY DISEASE
     Dosage: 10/12.5MG DAILY
     Route: 048

REACTIONS (9)
  - Wrong technique in drug usage process [Unknown]
  - Drug dose omission [Unknown]
  - Inappropriate schedule of drug administration [Not Recovered/Not Resolved]
  - Drug ineffective [Not Recovered/Not Resolved]
  - Fasciitis [Not Recovered/Not Resolved]
  - Rash [Not Recovered/Not Resolved]
  - Arthralgia [Not Recovered/Not Resolved]
  - Back pain [Not Recovered/Not Resolved]
  - Pain [Not Recovered/Not Resolved]
